FAERS Safety Report 5458617-1 (Version None)
Quarter: 2007Q3

REPORT INFORMATION
  Report Type: 
  Country: None (occurrence: None)
  Receive Date: 20070919
  Receipt Date: 20070917
  Transmission Date: 20080115
  Serious: Yes (Hospitalization)
  Sender: FDA-Public Use
  Company Number: FR-BRISTOL-MYERS SQUIBB COMPANY-13912613

PATIENT
  Age: 69 Year
  Sex: Female

DRUGS (4)
  1. AMIKLIN POWDER [Suspect]
     Indication: CHOLANGITIS
     Route: 042
     Dates: start: 20070731, end: 20070804
  2. ROCEPHIN [Suspect]
     Indication: CHOLANGITIS
     Route: 042
     Dates: start: 20070729, end: 20070806
  3. FLAGYL [Suspect]
     Indication: CHOLANGITIS
     Route: 042
     Dates: start: 20070731, end: 20070806
  4. HEXABRIX [Suspect]
     Indication: ENDOSCOPIC RETROGRADE CHOLANGIOPANCREATOGRAPHY
     Route: 042
     Dates: start: 20070804, end: 20070804

REACTIONS (4)
  - DERMATITIS BULLOUS [None]
  - ERYTHEMA [None]
  - RASH PUSTULAR [None]
  - RASH VESICULAR [None]
